FAERS Safety Report 26181596 (Version 1)
Quarter: 2025Q4

REPORT INFORMATION
  Report Type: Spontaneous
  Country: US (occurrence: US)
  Receive Date: 20251221
  Receipt Date: 20251221
  Transmission Date: 20260117
  Serious: No
  Sender: IMPEL NEUROPHARMA
  Company Number: US-IMPEL-2025-US-049207

PATIENT
  Age: 57 Year
  Sex: Female

DRUGS (25)
  1. SPIRONOLACTONE [Concomitant]
     Active Substance: SPIRONOLACTONE
  2. POTASSIUM CHLORIDE [Concomitant]
     Active Substance: POTASSIUM CHLORIDE
  3. SPIRIVA [Concomitant]
     Active Substance: TIOTROPIUM BROMIDE MONOHYDRATE
  4. PRAZOSIN [Concomitant]
     Active Substance: PRAZOSIN
  5. OMEPRAZOLE [Concomitant]
     Active Substance: OMEPRAZOLE
  6. PANCREATIN [Concomitant]
     Active Substance: PANCRELIPASE
  7. TYLENOL EXTRA STRENGTH [Concomitant]
     Active Substance: ACETAMINOPHEN
  8. IBUPROFEN [Concomitant]
     Active Substance: IBUPROFEN
  9. PROPRANOLOL [Concomitant]
     Active Substance: PROPRANOLOL HYDROCHLORIDE
  10. DEMANNOSE [Concomitant]
     Active Substance: DEMANNOSE
  11. VITAMIN B12 [Concomitant]
     Active Substance: CYANOCOBALAMIN
  12. CHOLESTYRAMINE [Concomitant]
     Active Substance: CHOLESTYRAMINE
  13. CRESTOR [Concomitant]
     Active Substance: ROSUVASTATIN CALCIUM
  14. LAMOTRIGINE [Concomitant]
     Active Substance: LAMOTRIGINE
  15. AZELASTINE [Concomitant]
     Active Substance: AZELASTINE
  16. LIDOCAINE [Concomitant]
     Active Substance: LIDOCAINE
  17. TRAMADOL [Concomitant]
     Active Substance: TRAMADOL
  18. WELLBUTRIN [Concomitant]
     Active Substance: BUPROPION HYDROCHLORIDE
  19. TIZANIDINE [Concomitant]
     Active Substance: TIZANIDINE
  20. PHENERGAN [Concomitant]
     Active Substance: PROMETHAZINE HYDROCHLORIDE
  21. LEVOTHYROXINE [Concomitant]
     Active Substance: LEVOTHYROXINE
  22. CLONIDINE [Concomitant]
     Active Substance: CLONIDINE
  23. CLONAZEPAM [Concomitant]
     Active Substance: CLONAZEPAM
  24. PENNSAID [Concomitant]
     Active Substance: DICLOFENAC SODIUM
  25. TRUDHESA [Suspect]
     Active Substance: DIHYDROERGOTAMINE MESYLATE
     Indication: Migraine
     Dosage: 3 TIMES PER WEEK WITH 7 DAYS IN BETWEEN
     Route: 045
     Dates: start: 20220401, end: 20251030

REACTIONS (1)
  - Muscle spasms [Recovered/Resolved]

NARRATIVE: CASE EVENT DATE: 20220401
